FAERS Safety Report 25025038 (Version 1)
Quarter: 2025Q1

REPORT INFORMATION
  Report Type: Spontaneous
  Country: US (occurrence: None)
  Receive Date: 20250228
  Receipt Date: 20250228
  Transmission Date: 20250408
  Serious: Yes (Hospitalization)
  Sender: FDA-CTU
  Company Number: None

PATIENT
  Sex: Female

DRUGS (3)
  1. OPSUMIT [Suspect]
     Active Substance: MACITENTAN
     Indication: Pulmonary arterial hypertension
     Dosage: FREQUENCY : DAILY;?
     Route: 048
     Dates: start: 202403
  2. WINREVAIR [Suspect]
     Active Substance: SOTATERCEPT-CSRK
  3. TADALAFIL [Suspect]
     Active Substance: TADALAFIL

REACTIONS (5)
  - Complications of transplanted liver [None]
  - Fluid retention [None]
  - Weight increased [None]
  - Dyspnoea exertional [None]
  - Blood pressure decreased [None]
